FAERS Safety Report 11936305 (Version 1)
Quarter: 2016Q1

REPORT INFORMATION
  Report Type: Report from Study
  Country: US (occurrence: US)
  Receive Date: 20160121
  Receipt Date: 20160121
  Transmission Date: 20160526
  Serious: Yes (Other)
  Sender: FDA-Public Use
  Company Number: PHEH2016US001508

PATIENT
  Age: 39 Year
  Sex: Female

DRUGS (1)
  1. GILENYA [Suspect]
     Active Substance: FINGOLIMOD HYDROCHLORIDE
     Indication: MULTIPLE SCLEROSIS
     Dosage: 1 CAPSULE, QOD
     Route: 048
     Dates: start: 201401

REACTIONS (3)
  - Cough [Unknown]
  - Prescribed underdose [Unknown]
  - Bronchitis [Unknown]

NARRATIVE: CASE EVENT DATE: 201401
